FAERS Safety Report 16564157 (Version 1)
Quarter: 2019Q3

REPORT INFORMATION
  Report Type: Spontaneous
  Country: US (occurrence: US)
  Receive Date: 20190712
  Receipt Date: 20190712
  Transmission Date: 20191004
  Serious: No
  Sender: FDA-Public Use
  Company Number: US-JNJFOC-20190715123

PATIENT
  Sex: Female
  Weight: 135 kg

DRUGS (4)
  1. PAXIL [Concomitant]
     Active Substance: PAROXETINE HYDROCHLORIDE
     Indication: FEELING OF RELAXATION
     Route: 065
  2. CLONEZEPAM [Concomitant]
     Indication: SLEEP DISORDER
     Route: 065
  3. WOMENS ROGAINE [Suspect]
     Active Substance: MINOXIDIL
     Indication: ALOPECIA
     Dosage: 1 DROPPER FULL TWICE A DAY FOR THREE MONTHS
     Route: 061
  4. CLONEZEPAM [Concomitant]
     Indication: ANXIETY

REACTIONS (1)
  - Weight increased [Not Recovered/Not Resolved]

NARRATIVE: CASE EVENT DATE: 2019
